FAERS Safety Report 5428778-9 (Version None)
Quarter: 2007Q3

REPORT INFORMATION
  Report Type: 
  Country: None (occurrence: None)
  Receive Date: 20070829
  Receipt Date: 20070821
  Transmission Date: 20080115
  Serious: Yes (Hospitalization)
  Sender: FDA-Public Use
  Company Number: PHBS2007GB14141

PATIENT
  Age: 40 Year
  Sex: Male

DRUGS (1)
  1. CARBAMAZEPINE [Suspect]

REACTIONS (11)
  - AGITATION [None]
  - COMPUTERISED TOMOGRAM ABNORMAL [None]
  - CONFUSIONAL STATE [None]
  - ENCEPHALITIS HERPES [None]
  - GRAND MAL CONVULSION [None]
  - HERPES SIMPLEX DNA TEST POSITIVE [None]
  - HYPOGAMMAGLOBULINAEMIA [None]
  - LYMPHOCYTE COUNT INCREASED [None]
  - LYMPHOPENIA [None]
  - PYREXIA [None]
  - WHITE BLOOD CELL COUNT INCREASED [None]
